FAERS Safety Report 17424129 (Version 3)
Quarter: 2020Q1

REPORT INFORMATION
  Report Type: Spontaneous
  Country: FR (occurrence: FR)
  Receive Date: 20200217
  Receipt Date: 20200330
  Transmission Date: 20200409
  Serious: Yes (Hospitalization)
  Sender: FDA-Public Use
  Company Number: FR-EMD SERONO-9145805

PATIENT
  Sex: Male
  Weight: 97 kg

DRUGS (3)
  1. GLUCOPHAGE [Suspect]
     Active Substance: METFORMIN HYDROCHLORIDE
     Indication: DIABETES MELLITUS
     Dates: start: 20191011, end: 2019
  2. JANUVIA [Suspect]
     Active Substance: SITAGLIPTIN PHOSPHATE
     Indication: DIABETES MELLITUS
     Dates: start: 20191011, end: 2019
  3. HEMI-DAONIL [Suspect]
     Active Substance: GLYBURIDE
     Indication: DIABETES MELLITUS
     Dates: start: 20191011, end: 2019

REACTIONS (15)
  - Pain [Recovered/Resolved]
  - Laryngeal discomfort [Recovered/Resolved]
  - Weight decreased [Unknown]
  - Tachycardia [Unknown]
  - Inflammation [Unknown]
  - Antibody test abnormal [Unknown]
  - Pulmonary toxicity [Unknown]
  - Cough [Recovered/Resolved]
  - Blood pressure increased [Unknown]
  - Lung disorder [Recovered/Resolved]
  - Cardiac failure [Unknown]
  - Dyspnoea exertional [Recovered/Resolved]
  - General physical health deterioration [Recovered/Resolved]
  - Bronchial disorder [Unknown]
  - Brain natriuretic peptide increased [Unknown]

NARRATIVE: CASE EVENT DATE: 2019
